FAERS Safety Report 9733548 (Version 1)
Quarter: 2013Q4

REPORT INFORMATION
  Report Type: Spontaneous
  Country: US (occurrence: None)
  Receive Date: 20131204
  Receipt Date: 20131204
  Transmission Date: 20140711
  Serious: Yes (Hospitalization)
  Sender: FDA-Public Use
  Company Number: None

PATIENT
  Age: 72 Year
  Sex: Male
  Weight: 89 kg

DRUGS (2)
  1. TICAGRELOR [Suspect]
     Indication: STENT PLACEMENT
     Dosage: 1 PILL BID ORAL
     Route: 048
  2. WARFARIN [Suspect]
     Indication: EMBOLISM VENOUS
     Route: 048

REACTIONS (4)
  - Gastrointestinal haemorrhage [None]
  - Melaena [None]
  - Gastritis [None]
  - Oesophageal ulcer [None]
